FAERS Safety Report 4677988-7 (Version None)
Quarter: 2005Q2

REPORT INFORMATION
  Report Type: 
  Country: None (occurrence: None)
  Receive Date: 20050531
  Receipt Date: 20050518
  Transmission Date: 20051028
  Serious: Yes (Death, Hospitalization, Other)
  Sender: FDA-Public Use
  Company Number: 2005AP03078

PATIENT
  Age: 25173 Day
  Sex: Male
  Weight: 60 kg

DRUGS (22)
  1. TENORMIN [Suspect]
     Indication: ANGINA UNSTABLE
     Route: 048
     Dates: start: 20041224, end: 20050408
  2. BAYASPIRIN [Suspect]
     Indication: ANGINA UNSTABLE
     Route: 048
     Dates: start: 20041224, end: 20050408
  3. ZYLORIC [Suspect]
     Indication: HYPERURICAEMIA
     Route: 048
     Dates: start: 20041224, end: 20050408
  4. NEORAL [Suspect]
     Indication: NEPHROTIC SYNDROME
     Route: 048
     Dates: start: 20050205, end: 20050407
  5. NEORAL [Suspect]
     Route: 048
     Dates: start: 20050220, end: 20050408
  6. PERSANTIN-L [Suspect]
     Indication: PROTEINURIA
     Route: 048
     Dates: start: 20041224, end: 20050408
  7. PRODIL [Suspect]
     Indication: SYSTEMIC MYCOSIS
     Route: 042
     Dates: start: 20050301, end: 20050310
  8. PRODIL [Suspect]
     Route: 042
     Dates: start: 20050311, end: 20050323
  9. PRODIL [Suspect]
     Route: 042
     Dates: start: 20050408
  10. DIFLUCAN [Suspect]
     Indication: SYSTEMIC MYCOSIS
     Route: 048
     Dates: start: 20050323, end: 20050408
  11. LOCHOL [Suspect]
     Indication: HYPERCHOLESTEROLAEMIA
     Route: 048
     Dates: start: 20050125, end: 20050408
  12. LASIX [Suspect]
     Indication: RENAL FAILURE
     Route: 048
     Dates: start: 20041224, end: 20050408
  13. NU-LOTAN [Suspect]
     Indication: PROTEINURIA
     Route: 048
     Dates: start: 20041224, end: 20050408
  14. SIGMART [Suspect]
     Indication: ANGINA UNSTABLE
     Route: 048
     Dates: start: 20050309, end: 20050408
  15. SIGMART [Suspect]
     Route: 042
     Dates: start: 20050408, end: 20050412
  16. ALTAT [Suspect]
     Indication: PROPHYLAXIS AGAINST GASTROINTESTINAL ULCER
     Route: 048
     Dates: start: 20041228, end: 20050413
  17. ALTAT [Suspect]
     Route: 042
     Dates: start: 20050414, end: 20050418
  18. ALDACTONE [Suspect]
     Indication: RENAL FAILURE
     Route: 048
     Dates: start: 20041224, end: 20050408
  19. PANALDINE [Suspect]
     Indication: ANGINA UNSTABLE
     Route: 048
     Dates: start: 20050307, end: 20050408
  20. MUCOSTA [Concomitant]
     Dates: start: 20041224, end: 20050408
  21. PRERAN [Concomitant]
     Dates: start: 20050119, end: 20050408
  22. PREDONINE [Concomitant]
     Dates: start: 20041220, end: 20050408

REACTIONS (10)
  - CHEST X-RAY ABNORMAL [None]
  - DRUG LEVEL INCREASED [None]
  - ESCHERICHIA INFECTION [None]
  - GRANULOCYTOPENIA [None]
  - IMMUNOSUPPRESSION [None]
  - PNEUMONIA [None]
  - SEPTIC SHOCK [None]
  - THROMBOCYTOPENIA [None]
  - URINE OUTPUT DECREASED [None]
  - WHITE BLOOD CELL COUNT DECREASED [None]
